FAERS Safety Report 16742036 (Version 1)
Quarter: 2019Q3

REPORT INFORMATION
  Report Type: Spontaneous
  Country: GB (occurrence: GB)
  Receive Date: 20190826
  Receipt Date: 20190826
  Transmission Date: 20191005
  Serious: Yes (Disabling)
  Sender: FDA-Public Use
  Company Number: GB-TEVA-2019-GB-1096215

PATIENT
  Age: 72 Year
  Sex: Male
  Weight: 54 kg

DRUGS (22)
  1. CASSIA [Concomitant]
     Dosage: 2-4-4 DAILY
     Dates: start: 20180706, end: 20190521
  2. LANSOPRAZOLE. [Concomitant]
     Active Substance: LANSOPRAZOLE
     Dosage: 1 DOSAGE FORM FOR EVERY 1 DAYS
     Dates: start: 20180706
  3. MELATONIN [Concomitant]
     Active Substance: MELATONIN
     Dosage: TAKE ONE AT NIGHT IF FAILING TO FALL ASLEEP
     Dates: start: 20190717
  4. ACLIDINIUM [Concomitant]
     Active Substance: ACLIDINIUM BROMIDE
     Dosage: 2 DOSAGE FORM FOR EVERY 1 DAYS
     Route: 055
     Dates: start: 20190627
  5. ATORVASTATIN [Concomitant]
     Active Substance: ATORVASTATIN
     Indication: BLOOD CHOLESTEROL INCREASED
     Dosage: IN THE EVENING
     Dates: start: 20190122
  6. COSMOCOL [Concomitant]
     Dosage: SACHET
     Dates: start: 20180911
  7. BRICANYL [Concomitant]
     Active Substance: TERBUTALINE SULFATE
     Dosage: 1 DOSAGEFORM
     Route: 055
     Dates: start: 20180816
  8. FUROSEMIDE. [Concomitant]
     Active Substance: FUROSEMIDE
     Dosage: EACH MORNING
     Dates: start: 20190627
  9. CARBOCISTEINE [Concomitant]
     Active Substance: CARBOCYSTEINE
     Dosage: 4 DOSAGE FORM FOR EVERY 1 DAY
     Dates: start: 20180706
  10. BRALTUS [Concomitant]
     Active Substance: TIOTROPIUM BROMIDE
     Dosage: 1 DOSAGE FORM
     Route: 055
     Dates: start: 20181113
  11. CO-AMOXICLAV [Suspect]
     Active Substance: AMOXICILLIN\CLAVULANATE POTASSIUM
     Indication: ABDOMINAL PAIN
     Dosage: 500MG/125MG
     Route: 048
     Dates: start: 20190715, end: 20190720
  12. AMLODIPINE [Concomitant]
     Active Substance: AMLODIPINE BESYLATE
     Dosage: 1 DOSAGEFORM
     Dates: start: 20180706, end: 20190717
  13. LOSARTAN. [Concomitant]
     Active Substance: LOSARTAN
     Dosage: 1 DOSAGE FORM FOR EVERY 1 DAYS
     Dates: start: 20180706, end: 20190717
  14. CO-DYDRAMOL [Concomitant]
     Active Substance: ACETAMINOPHEN\DIHYDROCODEINE
     Dosage: TAKE 1 OR 2 4 TIMES/DAY
     Dates: start: 20181211
  15. DUORESP SPIROMAX [Concomitant]
     Active Substance: BUDESONIDE\FORMOTEROL
     Dosage: 2 DOSAGE FORM FOR EVERY 1 DAYS
     Route: 055
     Dates: start: 20181211
  16. NUTRITIONAL SUPPLEMENT [Concomitant]
     Active Substance: DIETARY SUPPLEMENT
     Dosage: USE AS DIRECTED
     Dates: start: 20181211
  17. AZITHROMYCIN ANHYDROUS. [Concomitant]
     Active Substance: AZITHROMYCIN ANHYDROUS
     Dosage: 3 DOSAGE FORM FOR EVERY 1 WEEKS
     Dates: start: 20180706
  18. VENTOLIN [Concomitant]
     Active Substance: ALBUTEROL SULFATE
     Dosage: 2 DOSAGEFORM
     Route: 055
     Dates: start: 20181113
  19. CLOPIDOGREL [Concomitant]
     Active Substance: CLOPIDOGREL BISULFATE
     Dosage: 1 DOSAGE FORM FOR EVERY 1 DAYS
     Dates: start: 20180706
  20. SALBUTAMOL [Concomitant]
     Active Substance: ALBUTEROL
     Dosage: 1 DOSAGEFORM
     Route: 055
     Dates: start: 20181211
  21. AMOXICILLIN. [Concomitant]
     Active Substance: AMOXICILLIN
     Dates: start: 20181211
  22. FLUOXETINE [Concomitant]
     Active Substance: FLUOXETINE HYDROCHLORIDE
     Indication: AFFECTIVE DISORDER
     Dosage: 1 DOSAGE FORM FOR EVERY 1 DAYS
     Dates: start: 20180911, end: 20190521

REACTIONS (4)
  - Abdominal pain [Recovered/Resolved]
  - Faeces discoloured [Recovered/Resolved]
  - Diarrhoea [Recovered/Resolved]
  - Pyrexia [Recovered/Resolved]

NARRATIVE: CASE EVENT DATE: 20190716
